FAERS Safety Report 4351499-0 (Version None)
Quarter: 2004Q2

REPORT INFORMATION
  Report Type: 
  Country: None (occurrence: None)
  Receive Date: 20040430
  Receipt Date: 20040430
  Transmission Date: 20050107
  Serious: Yes (Death)
  Sender: FDA-Public Use
  Company Number: None

PATIENT
  Sex: Male
  Weight: 122.4712 kg

DRUGS (2)
  1. PAXIL [Suspect]
     Indication: ANTIDEPRESSANT THERAPY
     Dosage: 20 MG TAB QD PO
     Route: 048
  2. TRAMADOL HCL [Suspect]
     Indication: PAIN
     Dosage: 50 MG #40 TAB QID

REACTIONS (1)
  - DRUG TOXICITY [None]
